FAERS Safety Report 4281857-4 (Version None)
Quarter: 2004Q1

REPORT INFORMATION
  Report Type: 
  Country: None (occurrence: None)
  Receive Date: 20040129
  Receipt Date: 20040122
  Transmission Date: 20041129
  Serious: Yes (Hospitalization)
  Sender: FDA-Public Use
  Company Number: WAES 0401CAN00096

PATIENT

DRUGS (1)
  1. ZETIA [Suspect]
     Route: 048

REACTIONS (1)
  - DIVERTICULITIS [None]
